FAERS Safety Report 6108099-1 (Version None)
Quarter: 2009Q1

REPORT INFORMATION
  Report Type: 
  Country: None (occurrence: None)
  Receive Date: 20090305
  Receipt Date: 20090305
  Transmission Date: 20090719
  Serious: Yes (Other)
  Sender: FDA-Public Use
  Company Number: None

PATIENT
  Age: 5 Year
  Sex: Female

DRUGS (2)
  1. TRIAMINIC COUGH AND SORE THROAT GRAPE FLAVOR (NCH)(ACETAMINOPHEN (PARA [Suspect]
     Indication: COUGH
     Dosage: 2 TSP, QID, ORAL
     Route: 048
     Dates: start: 20080601, end: 20080801
  2. TRIAMINIC COUGH AND SORE THROAT GRAPE FLAVOR (NCH)(ACETAMINOPHEN (PARA [Suspect]
     Indication: NASOPHARYNGITIS
     Dosage: 2 TSP, QID, ORAL
     Route: 048
     Dates: start: 20080601, end: 20080801

REACTIONS (6)
  - CONVULSION [None]
  - DYSPNOEA [None]
  - EPILEPSY [None]
  - FAECAL INCONTINENCE [None]
  - OVERDOSE [None]
  - URINARY INCONTINENCE [None]
